FAERS Safety Report 4791578-7 (Version None)
Quarter: 2005Q4

REPORT INFORMATION
  Report Type: 
  Country: None (occurrence: None)
  Receive Date: 20051007
  Receipt Date: 20050406
  Transmission Date: 20060501
  Serious: No
  Sender: FDA-Public Use
  Company Number: US-BRISTOL-MYERS SQUIBB COMPANY-12923652

PATIENT
  Age: 60 Year
  Sex: Male
  Weight: 98 kg

DRUGS (4)
  1. AVAPRO [Suspect]
     Indication: HYPERTENSION
  2. SERZONE [Concomitant]
  3. PRILOSEC [Concomitant]
  4. LOPID [Concomitant]

REACTIONS (2)
  - DRUG INEFFECTIVE [None]
  - DYSPNOEA [None]
